FAERS Safety Report 10977588 (Version 1)
Quarter: 2015Q2

REPORT INFORMATION
  Report Type: Spontaneous
  Country: US (occurrence: None)
  Receive Date: 20150401
  Receipt Date: 20150401
  Transmission Date: 20150821
  Serious: Yes (Other)
  Sender: FDA-Public Use
  Company Number: None

PATIENT
  Age: 59 Year
  Sex: Female
  Weight: 68.04 kg

DRUGS (21)
  1. HYDROXYCHLOROQUINE [Concomitant]
     Active Substance: HYDROXYCHLOROQUINE
  2. BIOTIN [Concomitant]
     Active Substance: BIOTIN
  3. EVOXAC [Concomitant]
     Active Substance: CEVIMELINE HYDROCHLORIDE
  4. COQ10 [Concomitant]
     Active Substance: UBIDECARENONE
  5. CALCIUM (CITRACAL) [Concomitant]
  6. OMEGA 3 [Concomitant]
     Active Substance: OMEGA-3 FATTY ACIDS
  7. TYLENOL [Concomitant]
     Active Substance: ACETAMINOPHEN
  8. ALIVE! NATURES WAY MULTIVITAMIN [Concomitant]
     Active Substance: MINERALS\VITAMINS
  9. CLARITIN [Concomitant]
     Active Substance: LORATADINE
  10. SUPRAX [Suspect]
     Active Substance: CEFIXIME
     Indication: PHARYNGITIS STREPTOCOCCAL
     Dosage: 1 PILL
     Route: 048
     Dates: start: 20150306, end: 20150312
  11. E-STRING [Concomitant]
  12. BUPROPION HCL [Concomitant]
     Active Substance: BUPROPION HYDROCHLORIDE
  13. RESTASIS [Concomitant]
     Active Substance: CYCLOSPORINE
  14. PREMARIN [Concomitant]
     Active Substance: ESTROGENS, CONJUGATED
  15. MULTIVITAMIN [Concomitant]
     Active Substance: VITAMINS
  16. ADVIL [Concomitant]
     Active Substance: IBUPROFEN
  17. CITALOPRAM [Concomitant]
     Active Substance: CITALOPRAM HYDROBROMIDE
  18. ALENDRONATE SODIUM. [Concomitant]
     Active Substance: ALENDRONATE SODIUM
  19. VITAMIN D3 [Concomitant]
     Active Substance: CHOLECALCIFEROL
  20. VITAMIN C [Concomitant]
     Active Substance: ASCORBIC ACID
  21. METOPROLOL TARTRATE. [Concomitant]
     Active Substance: METOPROLOL TARTRATE

REACTIONS (6)
  - Myalgia [None]
  - Gait disturbance [None]
  - Pain [None]
  - Skin mass [None]
  - Grip strength decreased [None]
  - Erythema [None]

NARRATIVE: CASE EVENT DATE: 20150303
